FAERS Safety Report 4598322-7 (Version None)
Quarter: 2005Q1

REPORT INFORMATION
  Report Type: 
  Country: None (occurrence: None)
  Receive Date: 20050302
  Receipt Date: 20050218
  Transmission Date: 20050727
  Serious: Yes (Hospitalization)
  Sender: FDA-Public Use
  Company Number: 200510741BCC

PATIENT
  Age: 47 Year
  Sex: Male

DRUGS (1)
  1. ALEVE [Suspect]
     Dosage: 440 MG, ORAL
     Route: 048
     Dates: start: 20050216

REACTIONS (1)
  - MYOCARDIAL INFARCTION [None]
